FAERS Safety Report 5513771-8 (Version None)
Quarter: 2007Q4

REPORT INFORMATION
  Report Type: 
  Country: None (occurrence: None)
  Receive Date: 20071113
  Receipt Date: 20071105
  Transmission Date: 20080405
  Serious: Yes (Other)
  Sender: FDA-Public Use
  Company Number: PHFR2007GB03220

PATIENT
  Age: 68 Year
  Sex: Female
  Weight: 84 kg

DRUGS (7)
  1. ZOMETA [Suspect]
     Indication: MULTIPLE MYELOMA
     Dosage: 4 MG
     Route: 042
     Dates: start: 20030311, end: 20041011
  2. DEXAMETHASONE [Concomitant]
     Indication: MULTIPLE MYELOMA
     Dosage: 2 MG, EVERY 3 DAYS
     Route: 048
     Dates: start: 20011201
  3. PARACETAMOL [Concomitant]
     Dosage: 500 MG, PRN
     Route: 048
  4. TRAMADOL [Concomitant]
     Dosage: 50-100 MG, PRN
     Route: 048
  5. OMEPRAZOLE [Concomitant]
     Indication: GASTRITIS PROPHYLAXIS
     Dosage: 20 MG/DAY
     Route: 048
     Dates: start: 20060901
  6. PREGABALIN [Concomitant]
     Dosage: UNK, PRN
     Route: 065
  7. FLUCONAZOLE [Concomitant]
     Indication: ANTIFUNGAL PROPHYLAXIS
     Dosage: 50 MG
     Route: 048
     Dates: start: 20060901

REACTIONS (4)
  - BONE DISORDER [None]
  - OSTEONECROSIS [None]
  - PAIN IN JAW [None]
  - TONGUE ULCERATION [None]
